FAERS Safety Report 6193477 (Version 2)
Quarter: 2012Q4

REPORT INFORMATION
  Report Type: 
  Country: US (occurrence: US)
  Receive Date: 20061220
  Receipt Date: 20121218
  Transmission Date: 20130627
  Serious: Yes (Other)
  Sender: FDA-Public Use
  Company Number: US-GLAXOSMITHKLINE-A0587454A

PATIENT
  Age: 53 Year
  Sex: Female

DRUGS (3)
  1. COMMIT [Suspect]
     Indication: EX-TOBACCO USER
     Dosage: 4MG See dosage text
  2. COMMIT [Suspect]
     Indication: EX-TOBACCO USER
     Dosage: 2MG See dosage text
  3. BLOOD PRESSURE MEDICATION [Concomitant]

REACTIONS (3)
  - Drug abuse [Not Recovered/Not Resolved]
  - Drug administration error [Unknown]
  - Intentional drug misuse [Unknown]
